FAERS Safety Report 11832456 (Version 2)
Quarter: 2015Q4

REPORT INFORMATION
  Report Type: Spontaneous
  Country: US (occurrence: US)
  Receive Date: 20151214
  Receipt Date: 20151230
  Transmission Date: 20160305
  Serious: No
  Sender: FDA-Public Use
  Company Number: US-PFIZER INC-2015431323

PATIENT
  Age: 48 Year
  Sex: Male
  Weight: 116 kg

DRUGS (10)
  1. METFORMIN [Suspect]
     Active Substance: METFORMIN HYDROCHLORIDE
     Dosage: UNK
  2. AUGMENTIN [Suspect]
     Active Substance: AMOXICILLIN\CLAVULANATE POTASSIUM
     Dosage: UNK
  3. METOPROLOL [Suspect]
     Active Substance: METOPROLOL
  4. THEO [Suspect]
     Active Substance: THEOPHYLLINE ANHYDROUS
     Dosage: UNK
  5. ZETIA [Suspect]
     Active Substance: EZETIMIBE
  6. LIPITOR [Suspect]
     Active Substance: ATORVASTATIN CALCIUM
     Dosage: UNK
  7. MEDROL [Suspect]
     Active Substance: METHYLPREDNISOLONE
     Dosage: UNK
  8. LOVASTATIN. [Suspect]
     Active Substance: LOVASTATIN
  9. LOPRESSOR [Suspect]
     Active Substance: METOPROLOL TARTRATE
  10. AZITHROMYCIN [Suspect]
     Active Substance: AZITHROMYCIN ANHYDROUS
     Dosage: UNK

REACTIONS (1)
  - Drug hypersensitivity [Unknown]
